FAERS Safety Report 25982960 (Version 1)
Quarter: 2025Q4

REPORT INFORMATION
  Report Type: Report from Study
  Country: US (occurrence: US)
  Receive Date: 20251031
  Receipt Date: 20251031
  Transmission Date: 20260117
  Serious: Yes (Other)
  Sender: TAKEDA
  Company Number: US-TAKEDA-2022TUS101148

PATIENT
  Age: 84 Year
  Sex: Male

DRUGS (1)
  1. VEDOLIZUMAB [Suspect]
     Active Substance: VEDOLIZUMAB
     Indication: Product used for unknown indication
     Dosage: 300 MILLIGRAM, Q4WEEKS

REACTIONS (5)
  - Hydronephrosis [Recovered/Resolved]
  - Diarrhoea [Unknown]
  - Ureteric dilatation [Unknown]
  - Frequent bowel movements [Unknown]
  - Off label use [Unknown]
